FAERS Safety Report 23320261 (Version 1)
Quarter: 2023Q4

REPORT INFORMATION
  Report Type: Report from Study
  Country: IN (occurrence: None)
  Receive Date: 20231220
  Receipt Date: 20231220
  Transmission Date: 20240109
  Serious: Yes (Life-Threatening, Hospitalization)
  Sender: FDA-Public Use
  Company Number: 2023A287966

PATIENT
  Age: 64 Year
  Sex: Male
  Weight: 76 kg

DRUGS (1)
  1. LYNPARZA [Suspect]
     Active Substance: OLAPARIB
     Indication: Drug therapy
     Route: 048
     Dates: start: 20230715

REACTIONS (1)
  - Haemorrhage [Unknown]
